FAERS Safety Report 8573290-1 (Version None)
Quarter: 2012Q3

REPORT INFORMATION
  Report Type: 
  Country: None (occurrence: None)
  Receive Date: 20120806
  Receipt Date: 20120801
  Transmission Date: 20120928
  Serious: Yes (Hospitalization)
  Sender: FDA-Public Use
  Company Number: US-B.I. PHARMACEUTICALS,INC./RIDGEFIELD-2012-BP-17342BP

PATIENT
  Sex: Male

DRUGS (4)
  1. PLAVIX [Concomitant]
     Indication: PERIPHERAL ARTERIAL OCCLUSIVE DISEASE
     Dosage: 75 MG
     Route: 048
  2. ASPIRIN [Concomitant]
     Indication: PERIPHERAL ARTERIAL OCCLUSIVE DISEASE
     Dosage: 81 MG
     Route: 048
  3. LANTUS [Concomitant]
     Indication: TYPE 2 DIABETES MELLITUS
     Dosage: 23 U
     Route: 058
  4. TRADJENTA [Suspect]
     Indication: TYPE 2 DIABETES MELLITUS
     Dosage: 5 MG
     Route: 048
     Dates: start: 20120621

REACTIONS (7)
  - ANGIOGRAM ABNORMAL [None]
  - EMBOLISM [None]
  - CAROTID ARTERIAL EMBOLUS [None]
  - ANGINA PECTORIS [None]
  - THROMBOSIS [None]
  - ARTHRALGIA [None]
  - BACK PAIN [None]
